FAERS Safety Report 20670042 (Version 1)
Quarter: 2022Q2

REPORT INFORMATION
  Report Type: Spontaneous
  Country: US (occurrence: None)
  Receive Date: 20220401
  Receipt Date: 20220401
  Transmission Date: 20220721
  Serious: Yes (Other)
  Sender: FDA-Public Use
  Company Number: None

PATIENT
  Age: 67 Year
  Sex: Female
  Weight: 116.1 kg

DRUGS (1)
  1. ANASTROZOLE [Suspect]
     Active Substance: ANASTROZOLE
     Indication: Hormone therapy

REACTIONS (5)
  - Chest pain [None]
  - Dyspnoea [None]
  - Fatigue [None]
  - Constipation [None]
  - Intentional dose omission [None]

NARRATIVE: CASE EVENT DATE: 20220331
